FAERS Safety Report 7416229-4 (Version None)
Quarter: 2011Q2

REPORT INFORMATION
  Report Type: 
  Country: None (occurrence: None)
  Receive Date: 20110414
  Receipt Date: 20110411
  Transmission Date: 20111010
  Serious: Yes (Other)
  Sender: FDA-Public Use
  Company Number: US-PFIZER INC-2011079219

PATIENT
  Age: 44 Year
  Sex: Female

DRUGS (10)
  1. PIPERACILLIN AND TAZOBACTAM [Suspect]
     Indication: ANTIBIOTIC THERAPY
     Dosage: 3.375 G, EVERY 6 HOURS
  2. AMLODIPINE BESILATE [Concomitant]
     Dosage: 10 MG, DAILY
  3. SIMVASTATIN [Concomitant]
     Dosage: 40 MG, DAILY
  4. INSULIN LISPRO [Concomitant]
     Dosage: UNK, SLIDING SCALE
  5. PHENYTOIN [Suspect]
     Indication: CONVULSION
     Dosage: 150 MG, 3X/DAY (EVEY 8 HOURS)
  6. FAMOTIDINE [Concomitant]
     Dosage: 20 MG, DAILY
  7. HYDRALAZINE [Concomitant]
     Indication: BLOOD PRESSURE
     Dosage: 50 MG, 4X/DAY (EVERY 6 HOURS)
  8. VANCOMYCIN HCL [Suspect]
     Indication: ANTIBIOTIC THERAPY
     Dosage: 1000 MG, EVERY 12 HOURS
     Route: 042
  9. CLONIDINE [Concomitant]
     Indication: BLOOD PRESSURE
     Dosage: 0.3 MG, 3X/DAY (EVERY 8 HOURS)
  10. METOPROLOL [Concomitant]
     Dosage: 50 MG, EVERY 12 HOURS

REACTIONS (1)
  - DRUG RASH WITH EOSINOPHILIA AND SYSTEMIC SYMPTOMS [None]
